FAERS Safety Report 20946528 (Version 5)
Quarter: 2022Q4

REPORT INFORMATION
  Report Type: Report from Study
  Country: US (occurrence: US)
  Receive Date: 20220610
  Receipt Date: 20221208
  Transmission Date: 20230112
  Serious: Yes (Hospitalization, Other)
  Sender: FDA-Public Use
  Company Number: US-TAKEDA-2021TUS049563

PATIENT
  Age: 82 Year
  Sex: Male
  Weight: 60 kg

DRUGS (50)
  1. TEDUGLUTIDE [Suspect]
     Active Substance: TEDUGLUTIDE
     Indication: Short-bowel syndrome
     Dosage: 1.7 MILLIGRAM, QD
     Route: 058
     Dates: start: 20210804
  2. TEDUGLUTIDE [Suspect]
     Active Substance: TEDUGLUTIDE
     Indication: Short-bowel syndrome
     Dosage: 1.7 MILLIGRAM, QD
     Route: 058
     Dates: start: 20210804
  3. TEDUGLUTIDE [Suspect]
     Active Substance: TEDUGLUTIDE
     Indication: Short-bowel syndrome
     Dosage: 1.7 MILLIGRAM, QD
     Route: 058
     Dates: start: 20210804
  4. TEDUGLUTIDE [Suspect]
     Active Substance: TEDUGLUTIDE
     Indication: Short-bowel syndrome
     Dosage: 1.7 MILLIGRAM, QD
     Route: 058
     Dates: start: 20210804
  5. TEDUGLUTIDE [Suspect]
     Active Substance: TEDUGLUTIDE
     Indication: Malabsorption
     Dosage: 1.7 MILLIGRAM, QD
     Route: 030
     Dates: start: 20210804
  6. TEDUGLUTIDE [Suspect]
     Active Substance: TEDUGLUTIDE
     Indication: Malabsorption
     Dosage: 1.7 MILLIGRAM, QD
     Route: 030
     Dates: start: 20210804
  7. TEDUGLUTIDE [Suspect]
     Active Substance: TEDUGLUTIDE
     Indication: Malabsorption
     Dosage: 1.7 MILLIGRAM, QD
     Route: 030
     Dates: start: 20210804
  8. TEDUGLUTIDE [Suspect]
     Active Substance: TEDUGLUTIDE
     Indication: Malabsorption
     Dosage: 1.7 MILLIGRAM, QD
     Route: 030
     Dates: start: 20210804
  9. TEDUGLUTIDE [Suspect]
     Active Substance: TEDUGLUTIDE
     Dosage: 0.17 MILLIGRAM, QD
     Route: 058
     Dates: start: 20210808
  10. TEDUGLUTIDE [Suspect]
     Active Substance: TEDUGLUTIDE
     Dosage: 0.17 MILLIGRAM, QD
     Route: 058
     Dates: start: 20210808
  11. TEDUGLUTIDE [Suspect]
     Active Substance: TEDUGLUTIDE
     Dosage: 0.17 MILLIGRAM, QD
     Route: 058
     Dates: start: 20210808
  12. TEDUGLUTIDE [Suspect]
     Active Substance: TEDUGLUTIDE
     Dosage: 0.17 MILLIGRAM, QD
     Route: 058
     Dates: start: 20210808
  13. TEDUGLUTIDE [Suspect]
     Active Substance: TEDUGLUTIDE
     Dosage: 1.7 MILLIGRAM, QD
     Route: 058
     Dates: start: 20210804, end: 20220517
  14. TEDUGLUTIDE [Suspect]
     Active Substance: TEDUGLUTIDE
     Dosage: 1.7 MILLIGRAM, QD
     Route: 058
     Dates: start: 20210804, end: 20220517
  15. TEDUGLUTIDE [Suspect]
     Active Substance: TEDUGLUTIDE
     Dosage: 1.7 MILLIGRAM, QD
     Route: 058
     Dates: start: 20210804, end: 20220517
  16. TEDUGLUTIDE [Suspect]
     Active Substance: TEDUGLUTIDE
     Dosage: 1.7 MILLIGRAM, QD
     Route: 058
     Dates: start: 20210804, end: 20220517
  17. TEDUGLUTIDE [Suspect]
     Active Substance: TEDUGLUTIDE
     Dosage: 0.17 MILLILITER, QD
     Route: 058
  18. TEDUGLUTIDE [Suspect]
     Active Substance: TEDUGLUTIDE
     Dosage: 0.17 MILLILITER, QD
     Route: 058
  19. TEDUGLUTIDE [Suspect]
     Active Substance: TEDUGLUTIDE
     Dosage: 0.17 MILLILITER, QD
     Route: 058
  20. TEDUGLUTIDE [Suspect]
     Active Substance: TEDUGLUTIDE
     Dosage: 0.17 MILLILITER, QD
     Route: 058
  21. VITAMIN E [Concomitant]
     Active Substance: .ALPHA.-TOCOPHEROL
     Dosage: 1000 INTERNATIONAL UNIT
  22. MAGNESIUM SULFATE [Concomitant]
     Active Substance: MAGNESIUM SULFATE
     Route: 065
  23. CALCITRIOL [Concomitant]
     Active Substance: CALCITRIOL
     Dosage: 0.25 MICROGRAM
     Route: 065
  24. XALATAN [Concomitant]
     Active Substance: LATANOPROST
     Dosage: UNK
     Route: 065
  25. ZINC SULFATE [Concomitant]
     Active Substance: ZINC SULFATE
     Dosage: 50 MILLIGRAM
     Route: 065
  26. VITAMIN A [Concomitant]
     Active Substance: VITAMIN A
     Dosage: 2400 MICROGRAM
     Route: 065
  27. VITAMIN D2 [Concomitant]
     Active Substance: ERGOCALCIFEROL
     Dosage: 10 MICROGRAM
     Route: 065
  28. HYDROXOCOBALAMIN [Concomitant]
     Active Substance: HYDROXOCOBALAMIN
     Dosage: 1000 UNK
     Route: 065
  29. HYDROCODONE BITARTRATE AND ACETAMINOPHEN [Concomitant]
     Active Substance: ACETAMINOPHEN\HYDROCODONE BITARTRATE
     Route: 065
  30. TAMSULOSIN HYDROCHLORIDE [Concomitant]
     Active Substance: TAMSULOSIN HYDROCHLORIDE
     Dosage: 0.4 MILLIGRAM
     Route: 065
  31. MINERALS\VITAMINS [Concomitant]
     Active Substance: MINERALS\VITAMINS
     Route: 065
  32. SODIUM CHLORIDE [Concomitant]
     Active Substance: SODIUM CHLORIDE
     Dosage: 1000 MILLIGRAM
     Route: 065
  33. SODIUM CHLORIDE [Concomitant]
     Active Substance: SODIUM CHLORIDE
     Dosage: 0.45 PERCENT
     Route: 042
  34. SODIUM BICARBONATE [Concomitant]
     Active Substance: SODIUM BICARBONATE
     Indication: Malabsorption
     Dosage: 325 MILLIGRAM, BID
     Route: 065
     Dates: start: 202103
  35. OMEPRAZOLE [Concomitant]
     Active Substance: OMEPRAZOLE
     Dosage: 20 MILLIGRAM
     Route: 065
  36. LOPERAMIDE [Concomitant]
     Active Substance: LOPERAMIDE
     Dosage: 2 MILLIGRAM
     Route: 065
  37. GABAPENTIN [Concomitant]
     Active Substance: GABAPENTIN
     Dosage: 100 MILLIGRAM
     Route: 065
  38. FLUDROCORTISONE ACETATE [Concomitant]
     Active Substance: FLUDROCORTISONE ACETATE
     Route: 065
  39. LOMOTIL [Concomitant]
     Active Substance: ATROPINE SULFATE\DIPHENOXYLATE HYDROCHLORIDE
     Dosage: 5 MILLIGRAM, BID
     Route: 065
     Dates: start: 2014
  40. BREO ELLIPTA [Concomitant]
     Active Substance: FLUTICASONE FUROATE\VILANTEROL TRIFENATATE
     Route: 065
  41. AZOPT [Concomitant]
     Active Substance: BRINZOLAMIDE
     Dosage: UNK
     Route: 065
  42. ASPIRIN [Concomitant]
     Active Substance: ASPIRIN
     Dosage: 81 MILLIGRAM
     Route: 065
  43. IMODIUM [Concomitant]
     Active Substance: LOPERAMIDE HYDROCHLORIDE
     Dosage: 6 MILLIGRAM, BID
     Route: 065
     Dates: start: 2009
  44. SIMETHICONE (DIMETHICONE) [Concomitant]
     Active Substance: DIMETHICONE
     Dosage: 125 MILLIGRAM
  45. SIMBRINZA [Concomitant]
     Active Substance: BRIMONIDINE TARTRATE\BRINZOLAMIDE
  46. ROCKLATAN [Concomitant]
     Active Substance: LATANOPROST\NETARSUDIL MESYLATE
  47. IRON [Concomitant]
     Active Substance: IRON
     Dosage: 65 MILLIGRAM
  48. CITALOPRAM [Concomitant]
     Active Substance: CITALOPRAM HYDROBROMIDE
     Dosage: 10 MILLIGRAM
  49. PYRIDOXINE [Concomitant]
     Active Substance: PYRIDOXINE
     Dosage: 25 MILLIGRAM
  50. TPN [Concomitant]
     Active Substance: AMINO ACIDS\DEXTROSE\ELECTROLYTES NOS\SOYBEAN OIL

REACTIONS (18)
  - Renal failure [Unknown]
  - Obstruction [Unknown]
  - Dehydration [Unknown]
  - Illness [Unknown]
  - Blood potassium abnormal [Unknown]
  - Upper limb fracture [Unknown]
  - Fall [Unknown]
  - Peripheral swelling [Recovered/Resolved]
  - Back pain [Unknown]
  - Muscle spasms [Unknown]
  - Joint swelling [Unknown]
  - Mood altered [Unknown]
  - Hyperphagia [Unknown]
  - Flatulence [Unknown]
  - Product physical issue [Unknown]
  - Product container issue [Unknown]
  - Product solubility abnormal [Unknown]
  - Product use issue [Unknown]

NARRATIVE: CASE EVENT DATE: 20210804
